FAERS Safety Report 12778912 (Version 1)
Quarter: 2016Q3

REPORT INFORMATION
  Report Type: Spontaneous
  Country: US (occurrence: US)
  Receive Date: 20160926
  Receipt Date: 20160926
  Transmission Date: 20161109
  Serious: No
  Sender: FDA-Public Use
  Company Number: US-JAZZ-2016-US-011127

PATIENT
  Age: 24 Year
  Sex: Female

DRUGS (35)
  1. XYREM [Suspect]
     Active Substance: SODIUM OXYBATE
     Dosage: DOSE ADJUSTMENTS
     Route: 048
     Dates: start: 201507, end: 201508
  2. PYRIDOSTIGMINE BROMIDE. [Concomitant]
     Active Substance: PYRIDOSTIGMINE BROMIDE
  3. CYTOMEL [Concomitant]
     Active Substance: LIOTHYRONINE SODIUM
  4. MIRAPEX [Concomitant]
     Active Substance: PRAMIPEXOLE DIHYDROCHLORIDE
  5. OXYCONTIN [Concomitant]
     Active Substance: OXYCODONE HYDROCHLORIDE
  6. BACLOFEN. [Concomitant]
     Active Substance: BACLOFEN
  7. FISH OIL [Concomitant]
     Active Substance: FISH OIL
  8. HYDROCORTISONE. [Concomitant]
     Active Substance: HYDROCORTISONE
  9. LISINOPRIL. [Concomitant]
     Active Substance: LISINOPRIL
  10. PROVIGIL [Concomitant]
     Active Substance: MODAFINIL
  11. AMANTADINE [Concomitant]
     Active Substance: AMANTADINE
  12. CARNITYL [Concomitant]
  13. NORCO [Concomitant]
     Active Substance: ACETAMINOPHEN\HYDROCODONE BITARTRATE
  14. XYREM [Suspect]
     Active Substance: SODIUM OXYBATE
     Dosage: 4.5 G, BID
     Route: 048
     Dates: start: 201508
  15. ASPIRIN. [Concomitant]
     Active Substance: ASPIRIN
  16. LIOTHYRONINE SODIUM. [Concomitant]
     Active Substance: LIOTHYRONINE SODIUM
  17. OMEPRAZOLE. [Concomitant]
     Active Substance: OMEPRAZOLE
  18. XYREM [Suspect]
     Active Substance: SODIUM OXYBATE
     Indication: NARCOLEPSY
     Dosage: 2.25 G, BID
     Route: 048
     Dates: start: 201507, end: 201507
  19. LINZESS [Concomitant]
     Active Substance: LINACLOTIDE
  20. EPIPEN [Concomitant]
     Active Substance: EPINEPHRINE
  21. LUGOLS IODINE [Concomitant]
  22. SELENIUM [Concomitant]
     Active Substance: SELENIUM
  23. VICTOZA [Concomitant]
     Active Substance: LIRAGLUTIDE
  24. ACETYL L-CARNITINE [Concomitant]
     Active Substance: ACETYLCARNITINE
  25. VITAMIN D [Concomitant]
     Active Substance: CHOLECALCIFEROL
  26. CYMBALTA [Concomitant]
     Active Substance: DULOXETINE HYDROCHLORIDE
  27. DEPLIN [Concomitant]
     Active Substance: LEVOMEFOLATE CALCIUM
  28. SYNTHROID [Concomitant]
     Active Substance: LEVOTHYROXINE SODIUM
  29. COUMADIN [Concomitant]
     Active Substance: WARFARIN SODIUM
  30. ADDERALL [Concomitant]
     Active Substance: AMPHETAMINE ASPARTATE\AMPHETAMINE SULFATE\DEXTROAMPHETAMINE SACCHARATE\DEXTROAMPHETAMINE SULFATE
  31. ELIQUIS [Concomitant]
     Active Substance: APIXABAN
  32. MULTIVITAMIN [Concomitant]
     Active Substance: VITAMINS
  33. SUPER TWIN EPA/DHA [Concomitant]
  34. DHEA [Concomitant]
     Active Substance: PRASTERONE
  35. GABAPENTIN. [Concomitant]
     Active Substance: GABAPENTIN

REACTIONS (2)
  - Constipation [Recovering/Resolving]
  - Malaise [Unknown]

NARRATIVE: CASE EVENT DATE: 201603
